FAERS Safety Report 7288509-7 (Version None)
Quarter: 2011Q1

REPORT INFORMATION
  Report Type: 
  Country: None (occurrence: None)
  Receive Date: 20110211
  Receipt Date: 20110207
  Transmission Date: 20110831
  Serious: Yes (Death, Life-Threatening, Other)
  Sender: FDA-Public Use
  Company Number: CA-ASTRAZENECA-2010SE34480

PATIENT
  Age: 22421 Day
  Sex: Male

DRUGS (9)
  1. GLIMEPIRIDE [Concomitant]
     Dates: start: 20040601, end: 20100705
  2. ZOPICLONE [Concomitant]
     Dates: start: 20050201, end: 20100728
  3. ASPIRIN [Concomitant]
     Dates: start: 20040601, end: 20100707
  4. PERINDOPRIL [Concomitant]
     Dates: start: 20040601, end: 20100707
  5. CRESTOR [Suspect]
     Route: 048
     Dates: start: 20100614, end: 20100707
  6. METFORMIN HCL [Concomitant]
     Dates: start: 20040601, end: 20100707
  7. BRIVANIB ALANINATE [Suspect]
     Indication: GASTROINTESTINAL CANCER METASTATIC
     Route: 048
     Dates: start: 20100623, end: 20100704
  8. FLUOROURACIL [Suspect]
     Indication: GASTROINTESTINAL CANCER METASTATIC
     Route: 042
     Dates: start: 20100622, end: 20100624
  9. LEUCOVORIN CALCIUM [Suspect]
     Indication: GASTROINTESTINAL CANCER METASTATIC
     Route: 042
     Dates: start: 20100622, end: 20100622

REACTIONS (11)
  - HEPATIC FAILURE [None]
  - PLEURAL EFFUSION [None]
  - NEOPLASM MALIGNANT [None]
  - RENAL FAILURE ACUTE [None]
  - BILIARY DILATATION [None]
  - METASTASES TO LYMPH NODES [None]
  - METASTASES TO LUNG [None]
  - ASCITES [None]
  - RENAL TUBULAR NECROSIS [None]
  - METASTASES TO LIVER [None]
  - HYPOGLYCAEMIA [None]
